FAERS Safety Report 9310295 (Version 2)
Quarter: 2013Q2

REPORT INFORMATION
  Report Type: Spontaneous
  Country: CO (occurrence: CO)
  Receive Date: 20130527
  Receipt Date: 20130620
  Transmission Date: 20140414
  Serious: Yes (Other)
  Sender: FDA-Public Use
  Company Number: CO-AMGEN-COLSP2013036971

PATIENT
  Age: 23 Year
  Sex: Female

DRUGS (2)
  1. ENBREL [Suspect]
     Indication: PRODUCT USED FOR UNKNOWN INDICATION
     Dosage: 50 MG, UNK
     Route: 058
     Dates: start: 201304, end: 20130603
  2. METHOTREXATE [Concomitant]
     Indication: RHEUMATOID ARTHRITIS
     Dosage: 25 G, WEEKLY
     Dates: start: 201304

REACTIONS (8)
  - Oropharyngeal pain [Recovered/Resolved]
  - Productive cough [Not Recovered/Not Resolved]
  - Hypersensitivity [Unknown]
  - Tonsillitis [Recovered/Resolved]
  - Injection site bruising [Unknown]
  - Urinary tract infection [Recovered/Resolved]
  - Injection site swelling [Not Recovered/Not Resolved]
  - Injection site pruritus [Unknown]
